FAERS Safety Report 21859349 (Version 1)
Quarter: 2023Q1

REPORT INFORMATION
  Report Type: Spontaneous
  Country: US (occurrence: None)
  Receive Date: 20230112
  Receipt Date: 20230112
  Transmission Date: 20230417
  Serious: Yes (Hospitalization)
  Sender: FDA-Public Use
  Company Number: None

PATIENT
  Age: 48 Year
  Sex: Female
  Weight: 125.55 kg

DRUGS (1)
  1. MYRBETRIQ [Suspect]
     Active Substance: MIRABEGRON
     Indication: Urinary incontinence
     Dates: start: 20221212, end: 20221219

REACTIONS (10)
  - Blood urine present [None]
  - Flank pain [None]
  - Pelvic pain [None]
  - Suprapubic pain [None]
  - Abdominal discomfort [None]
  - Angioedema [None]
  - Angioedema [None]
  - Tongue oedema [None]
  - Pharyngeal oedema [None]
  - Autoimmune disorder [None]

NARRATIVE: CASE EVENT DATE: 20221220
